FAERS Safety Report 15679158 (Version 1)
Quarter: 2018Q4

REPORT INFORMATION
  Report Type: Spontaneous
  Country: NL (occurrence: NL)
  Receive Date: 20181203
  Receipt Date: 20181203
  Transmission Date: 20190205
  Serious: Yes (Hospitalization)
  Sender: FDA-Public Use
  Company Number: NL-AUROBINDO-AUR-APL-2018-058027

PATIENT
  Age: 75 Year
  Sex: Male

DRUGS (5)
  1. OXALIPLATIN. [Suspect]
     Active Substance: OXALIPLATIN
     Indication: GASTRIC CANCER
     Dosage: 109 MILLIGRAM, 3 WEEK
     Route: 042
     Dates: start: 20130828, end: 20131211
  2. BEVACIZUMAB. [Suspect]
     Active Substance: BEVACIZUMAB
     Indication: GASTRIC CANCER
     Dosage: 503 MILLIGRAM, 3 WEEK
     Route: 042
     Dates: start: 20130828, end: 20180725
  3. DOCETAXEL. [Suspect]
     Active Substance: DOCETAXEL
     Indication: GASTRIC CANCER
     Dosage: 94 MILLIGRAM, 3 WEEK
     Route: 042
     Dates: start: 20130828, end: 20131211
  4. CAPECITABINE. [Suspect]
     Active Substance: CAPECITABINE
     Indication: GASTRIC CANCER
     Dosage: 6600 MILLIGRAM, ONCE A DAY
     Route: 048
     Dates: start: 20130828, end: 20140219
  5. TRASTUZUMAB. [Suspect]
     Active Substance: TRASTUZUMAB
     Indication: GASTRIC CANCER
     Dosage: 400 MILLIGRAM, 3 WEEK
     Route: 042
     Dates: start: 20130828, end: 20180725

REACTIONS (1)
  - Malaise [Unknown]

NARRATIVE: CASE EVENT DATE: 20180810
